FAERS Safety Report 9014843 (Version 8)
Quarter: 2014Q3

REPORT INFORMATION
  Report Type: Report from Study
  Country: US (occurrence: US)
  Receive Date: 20130116
  Receipt Date: 20140718
  Transmission Date: 20150326
  Serious: Yes (Hospitalization)
  Sender: FDA-Public Use
  Company Number: US-BIOGENIDEC-2013BI002726

PATIENT
  Age: 51 Year
  Sex: Male
  Weight: 114 kg

DRUGS (15)
  1. AVONEX [Suspect]
     Active Substance: INTERFERON BETA-1A
     Indication: MULTIPLE SCLEROSIS
     Route: 030
     Dates: start: 20020223, end: 20080829
  2. IBUPROFEN. [Concomitant]
     Active Substance: IBUPROFEN
     Route: 048
  3. FLOMAX [Concomitant]
     Active Substance: TAMSULOSIN HYDROCHLORIDE
     Route: 048
  4. LISINOPRIL. [Concomitant]
     Active Substance: LISINOPRIL
     Route: 048
  5. AMLODIPINE BESYLATE. [Concomitant]
     Active Substance: AMLODIPINE BESYLATE
     Route: 048
  6. AVONEX [Suspect]
     Active Substance: INTERFERON BETA-1A
     Indication: MULTIPLE SCLEROSIS
     Route: 030
     Dates: start: 20121226
  7. GLIPIZIDE. [Concomitant]
     Active Substance: GLIPIZIDE
     Route: 048
  8. SIMVASTATIN. [Concomitant]
     Active Substance: SIMVASTATIN
     Route: 048
  9. LANTUS [Concomitant]
     Active Substance: INSULIN GLARGINE
     Dosage: DOSE UNIT:100
     Route: 058
  10. BUPROPION [Concomitant]
     Active Substance: BUPROPION
     Route: 048
  11. METFORMIN HCL [Concomitant]
     Active Substance: METFORMIN HYDROCHLORIDE
     Route: 048
  12. AVONEX [Suspect]
     Active Substance: INTERFERON BETA-1A
     Indication: MULTIPLE SCLEROSIS
     Route: 030
     Dates: start: 20081031, end: 20090130
  13. AVONEX [Suspect]
     Active Substance: INTERFERON BETA-1A
     Indication: MULTIPLE SCLEROSIS
     Route: 030
     Dates: start: 20100711
  14. ASPIRIN CHILD [Concomitant]
     Route: 048
  15. BYSTOLIC [Concomitant]
     Active Substance: NEBIVOLOL HYDROCHLORIDE
     Route: 048

REACTIONS (17)
  - Dysstasia [Not Recovered/Not Resolved]
  - Arthritis [Unknown]
  - Pneumonia [Recovered/Resolved]
  - Muscle atrophy [Unknown]
  - Large intestine polyp [Not Recovered/Not Resolved]
  - Diplopia [Recovered/Resolved]
  - Gait disturbance [Not Recovered/Not Resolved]
  - Multiple sclerosis relapse [Recovered/Resolved]
  - Fatigue [Recovered/Resolved]
  - Type 2 diabetes mellitus [Unknown]
  - Colon cancer stage I [Recovered/Resolved]
  - Prostatomegaly [Not Recovered/Not Resolved]
  - Influenza like illness [Not Recovered/Not Resolved]
  - Paranasal sinus hypersecretion [Recovered/Resolved]
  - Fall [Recovered/Resolved]
  - Essential hypertension [Unknown]
  - Paranasal sinus mucosal hypertrophy [Recovered/Resolved]

NARRATIVE: CASE EVENT DATE: 2002
